FAERS Safety Report 14703281 (Version 1)
Quarter: 2018Q2

REPORT INFORMATION
  Report Type: Spontaneous
  Country: US (occurrence: US)
  Receive Date: 20180402
  Receipt Date: 20180402
  Transmission Date: 20180711
  Serious: Yes (Hospitalization)
  Sender: FDA-Public Use
  Company Number: US-ACCORD-065056

PATIENT
  Age: 41 Year
  Sex: Female

DRUGS (4)
  1. TOPIRAMATE. [Suspect]
     Active Substance: TOPIRAMATE
     Indication: MIGRAINE
     Dosage: THE DOSE HAD BEEN INCREASED TO?100 MG TWICE A DAY 2 WEEKS AGO
  2. SALBUTAMOL [Concomitant]
     Active Substance: ALBUTEROL
  3. HYDROXYCHLOROQUINE [Concomitant]
     Active Substance: HYDROXYCHLOROQUINE
  4. TRAMADOL. [Concomitant]
     Active Substance: TRAMADOL
     Dosage: AS NEEDED

REACTIONS (5)
  - Off label use [Unknown]
  - Streptococcal infection [Unknown]
  - Haemophilus infection [Unknown]
  - Agranulocytosis [Recovering/Resolving]
  - Escherichia infection [Unknown]
